FAERS Safety Report 22044431 (Version 4)
Quarter: 2024Q1

REPORT INFORMATION
  Report Type: Spontaneous
  Country: US (occurrence: US)
  Receive Date: 20230228
  Receipt Date: 20240108
  Transmission Date: 20240409
  Serious: No
  Sender: FDA-Public Use
  Company Number: US-BRISTOL-MYERS SQUIBB COMPANY-2023-028602

PATIENT
  Age: 91 Year
  Sex: Male
  Weight: 73.48 kg

DRUGS (2)
  1. REVLIMID [Suspect]
     Active Substance: LENALIDOMIDE
     Indication: Plasma cell myeloma
     Route: 048
  2. REVLIMID [Suspect]
     Active Substance: LENALIDOMIDE
     Route: 048
     Dates: start: 20220707

REACTIONS (6)
  - Decreased appetite [Unknown]
  - Ageusia [Unknown]
  - Rash [Unknown]
  - Weight decreased [Unknown]
  - Fatigue [Unknown]
  - Hypoacusis [Unknown]
